FAERS Safety Report 7780038-7 (Version None)
Quarter: 2011Q3

REPORT INFORMATION
  Report Type: 
  Country: None (occurrence: None)
  Receive Date: 20110927
  Receipt Date: 20110412
  Transmission Date: 20111222
  Serious: No
  Sender: FDA-Public Use
  Company Number: US-ASTRAZENECA-2011SE21492

PATIENT
  Age: 58 Year
  Sex: Female

DRUGS (3)
  1. SEROQUEL XR [Suspect]
     Indication: BIPOLAR I DISORDER
     Route: 048
  2. ALPRAZOLAM [Concomitant]
  3. SEROQUEL XR [Suspect]
     Route: 048

REACTIONS (6)
  - BLOOD PRESSURE INCREASED [None]
  - MALAISE [None]
  - BURNING SENSATION [None]
  - CHEST PAIN [None]
  - HYPERVENTILATION [None]
  - EMOTIONAL DISORDER [None]
